FAERS Safety Report 24905695 (Version 1)
Quarter: 2025Q1

REPORT INFORMATION
  Report Type: Report from Study
  Country: US (occurrence: US)
  Receive Date: 20250130
  Receipt Date: 20250130
  Transmission Date: 20250409
  Serious: No
  Sender: HRA PHARMA
  Company Number: US-ORG100014127-2024000235

PATIENT
  Age: 40 Year
  Sex: Male

DRUGS (7)
  1. METOPIRONE [Suspect]
     Active Substance: METYRAPONE
     Indication: Cushing^s syndrome
     Dosage: 1 CAPSULE THREE TIMES DAILY
     Dates: start: 20230516
  2. Bactrim DS tablet 800-160 [Concomitant]
     Indication: Product used for unknown indication
  3. METFORMIN [Concomitant]
     Active Substance: METFORMIN HYDROCHLORIDE
     Indication: Product used for unknown indication
  4. methadone tablet 5mg [Concomitant]
     Indication: Product used for unknown indication
  5. mirtazapine tab 15mg odt [Concomitant]
     Indication: Product used for unknown indication
  6. Pantoprazole tablet 40MG [Concomitant]
     Indication: Product used for unknown indication
  7. Senna-S tablet 8.6-50MG [Concomitant]
     Indication: Product used for unknown indication

REACTIONS (1)
  - Off label use [Recovered/Resolved]

NARRATIVE: CASE EVENT DATE: 20230516
